FAERS Safety Report 12535765 (Version 1)
Quarter: 2016Q3

REPORT INFORMATION
  Report Type: Spontaneous
  Country: US (occurrence: None)
  Receive Date: 20160706
  Receipt Date: 20160706
  Transmission Date: 20161109
  Serious: Yes (Hospitalization)
  Sender: FDA-Public Use
  Company Number: None

PATIENT
  Age: 68 Year
  Sex: Female
  Weight: 80 kg

DRUGS (5)
  1. DUOTRAV EYEDROPS [Concomitant]
  2. VITAMIN D [Concomitant]
     Active Substance: CHOLECALCIFEROL
  3. LOSEC [Concomitant]
     Active Substance: OMEPRAZOLE
  4. PROLIA [Suspect]
     Active Substance: DENOSUMAB
     Indication: OSTEOPOROSIS
     Dosage: 6 MONTHLY  INTO THE MUSCLE
     Route: 030
  5. CALCIUM [Concomitant]
     Active Substance: CALCIUM

REACTIONS (4)
  - Intestinal haemorrhage [None]
  - Vomiting [None]
  - Urticaria [None]
  - Haemoglobin decreased [None]

NARRATIVE: CASE EVENT DATE: 20160705
